FAERS Safety Report 20533079 (Version 1)
Quarter: 2022Q1

REPORT INFORMATION
  Report Type: Report from Study
  Country: US (occurrence: US)
  Receive Date: 20220301
  Receipt Date: 20220301
  Transmission Date: 20220424
  Serious: No
  Sender: FDA-Public Use
  Company Number: US-NOVARTISTESTPH-NVSC2022US047680

PATIENT
  Sex: Male

DRUGS (1)
  1. MAYZENT [Suspect]
     Active Substance: SIPONIMOD
     Indication: Multiple sclerosis
     Dosage: 0.25 MG (DAY 1: 1 X 0.25 MG / DAY 2: 1 X 0.25 MG / DAY 3: 2 X 0.25 MG / DAY 4: 3 X 0.25 MG/ DAY 5: 5
     Route: 050

REACTIONS (1)
  - Headache [Unknown]
